FAERS Safety Report 6425253-X (Version None)
Quarter: 2009Q4

REPORT INFORMATION
  Report Type: 
  Country: None (occurrence: None)
  Receive Date: 20091103
  Receipt Date: 20091030
  Transmission Date: 20100525
  Serious: Yes (Death, Other)
  Sender: FDA-Public Use
  Company Number: JP-B.I. PHARMACEUTICALS,INC./RIDGEFIELD-2009-BP-12666NB

PATIENT
  Age: 88 Year
  Sex: Female

DRUGS (6)
  1. MOBIC [Suspect]
     Indication: BACK PAIN
     Dosage: 10 MG
     Route: 048
     Dates: start: 20090816, end: 20091008
  2. ARTIST [Suspect]
     Indication: VENTRICULAR EXTRASYSTOLES
     Dosage: 5 MG
     Route: 048
     Dates: start: 20090805, end: 20091013
  3. MUCOSTA [Suspect]
     Indication: BACK PAIN
     Dates: start: 20090816
  4. ASPENON [Suspect]
     Indication: VENTRICULAR EXTRASYSTOLES
     Dates: start: 20090805
  5. BONALON [Suspect]
     Indication: BACK PAIN
     Dates: start: 20090816
  6. MAGMITT [Concomitant]
     Route: 048

REACTIONS (2)
  - AGRANULOCYTOSIS [None]
  - PNEUMONIA [None]
